FAERS Safety Report 6519096-6 (Version None)
Quarter: 2009Q4

REPORT INFORMATION
  Report Type: 
  Country: None (occurrence: None)
  Receive Date: 20091228
  Receipt Date: 20091217
  Transmission Date: 20100525
  Serious: Yes (Death)
  Sender: FDA-Public Use
  Company Number: CH-BAYER-200943087GPV

PATIENT
  Age: 97 Year
  Sex: Female
  Weight: 45 kg

DRUGS (9)
  1. ASPIRIN [Suspect]
     Indication: DRUG USE FOR UNKNOWN INDICATION
     Route: 048
  2. CALCIUM DOBESILATE [Suspect]
     Indication: MACULAR DEGENERATION
     Dosage: TOTAL DAILY DOSE: 1000 MG
     Route: 048
     Dates: start: 20090116, end: 20090320
  3. AMLODIPINE [Suspect]
     Indication: HYPERTENSION
     Dosage: TOTAL DAILY DOSE: 10 MG
     Route: 048
  4. TORASEMIDE [Suspect]
     Indication: MYOCARDIAL ISCHAEMIA
     Dosage: TOTAL DAILY DOSE: 7.5 MG
     Route: 048
  5. PARACETAMOL [Suspect]
     Indication: DRUG USE FOR UNKNOWN INDICATION
     Route: 048
  6. PANTOPRAZOLE [Suspect]
     Indication: DRUG USE FOR UNKNOWN INDICATION
     Dosage: TOTAL DAILY DOSE: 40 MG
     Route: 048
  7. METOPROLOL TARTRATE [Concomitant]
     Indication: HYPERTENSION
     Dosage: TOTAL DAILY DOSE: 100 MG
     Route: 048
  8. COLECALCIFEROL [Concomitant]
     Route: 048
  9. MACROGOL [Concomitant]
     Route: 048

REACTIONS (3)
  - ANAEMIA [None]
  - INFECTION [None]
  - LEUKOPENIA [None]
